FAERS Safety Report 13986799 (Version 2)
Quarter: 2025Q1

REPORT INFORMATION
  Report Type: Spontaneous
  Country: US (occurrence: US)
  Receive Date: 20170919
  Receipt Date: 20250221
  Transmission Date: 20250409
  Serious: Yes (Hospitalization)
  Sender: PFIZER
  Company Number: US-PFIZER INC-2017399197

PATIENT
  Age: 75 Year
  Sex: Female
  Weight: 70.31 kg

DRUGS (10)
  1. IBRANCE [Suspect]
     Active Substance: PALBOCICLIB
     Indication: Breast cancer stage IV
     Route: 048
     Dates: start: 201701
  2. IBRANCE [Suspect]
     Active Substance: PALBOCICLIB
     Route: 048
  3. SYMBICORT [Concomitant]
     Active Substance: BUDESONIDE\FORMOTEROL FUMARATE DIHYDRATE
     Indication: Chronic obstructive pulmonary disease
     Dosage: TWO PUFFS, INHALER, TWICE A DAY
  4. LOSARTAN AND HYDROCHLOROTHIAZIDE [Concomitant]
     Active Substance: HYDROCHLOROTHIAZIDE\LOSARTAN POTASSIUM
     Indication: Hypertension
     Dosage: [LOSARTAN POTASSIUM 100MG]/[HYDROCHLOROTHIAZIDE 12.5MG] ONE TIMES A DAY
     Route: 048
  5. VERAPAMIL [Concomitant]
     Active Substance: VERAPAMIL HYDROCHLORIDE
     Indication: Hypertension
     Dosage: 1 DF, 1X/DAY
     Route: 048
  6. VANCOMYCIN [Concomitant]
     Active Substance: VANCOMYCIN
     Indication: Clostridium difficile colitis
     Dosage: UNK, FOUR TIMES A DAY
     Route: 048
  7. LORAZEPAM [Concomitant]
     Active Substance: LORAZEPAM
     Indication: Anxiety
     Dosage: 25 MG, 1X/DAY
     Route: 048
     Dates: start: 201612
  8. FEMARA [Concomitant]
     Active Substance: LETROZOLE
     Indication: Breast cancer
     Dosage: 1 DF, 1X/DAY
     Route: 048
     Dates: start: 201612
  9. REMERON [Concomitant]
     Active Substance: MIRTAZAPINE
     Indication: Increased appetite
     Dosage: 30 MG, 1X/DAY
     Route: 048
     Dates: start: 201612
  10. REMERON [Concomitant]
     Active Substance: MIRTAZAPINE
     Indication: Depression

REACTIONS (3)
  - Aortic aneurysm [Unknown]
  - Anaemia [Unknown]
  - Localised infection [Unknown]

NARRATIVE: CASE EVENT DATE: 20170831
